FAERS Safety Report 8519894-3 (Version None)
Quarter: 2012Q3

REPORT INFORMATION
  Report Type: 
  Country: None (occurrence: None)
  Receive Date: 20120719
  Receipt Date: 20120703
  Transmission Date: 20120928
  Serious: No
  Sender: FDA-Public Use
  Company Number: US-BIOGENIDEC-2012BI023928

PATIENT
  Age: 65 Year
  Sex: Male

DRUGS (5)
  1. AVONEX [Suspect]
     Route: 030
     Dates: start: 20120630
  2. BACLOFEN [Concomitant]
     Indication: MUSCLE SPASTICITY
  3. AVONEX [Suspect]
     Route: 030
     Dates: start: 20120702
  4. AVONEX [Suspect]
     Indication: MULTIPLE SCLEROSIS
     Route: 030
     Dates: start: 20120702
  5. BACLOFEN [Concomitant]
     Indication: MUSCLE TIGHTNESS

REACTIONS (6)
  - MUSCULOSKELETAL STIFFNESS [None]
  - ASTHENIA [None]
  - MUSCULAR WEAKNESS [None]
  - MUSCLE TIGHTNESS [None]
  - PAIN IN EXTREMITY [None]
  - ADRENOCORTICAL STEROID THERAPY [None]
